FAERS Safety Report 15361612 (Version 1)
Quarter: 2018Q3

REPORT INFORMATION
  Report Type: Spontaneous
  Country: US (occurrence: US)
  Receive Date: 20180831
  Receipt Date: 20180831
  Transmission Date: 20181010
  Serious: Yes (Disabling, Other)
  Sender: FDA-Public Use
  Company Number: None

PATIENT
  Age: 24 Year
  Sex: Female
  Weight: 115.67 kg

DRUGS (1)
  1. MIRENA [Suspect]
     Active Substance: LEVONORGESTREL
     Dates: start: 20180701

REACTIONS (13)
  - Vision blurred [None]
  - Nausea [None]
  - Migraine [None]
  - Insomnia [None]
  - Pelvic pain [None]
  - Muscle spasms [None]
  - Vaginal infection [None]
  - Dizziness [None]
  - Abdominal pain [None]
  - Haemorrhage [None]
  - Arthralgia [None]
  - Fatigue [None]
  - Chest pain [None]

NARRATIVE: CASE EVENT DATE: 20180818
